FAERS Safety Report 23786501 (Version 1)
Quarter: 2024Q2

REPORT INFORMATION
  Report Type: Spontaneous
  Country: US (occurrence: US)
  Receive Date: 20240426
  Receipt Date: 20240426
  Transmission Date: 20240715
  Serious: Yes (Other)
  Sender: FDA-Public Use
  Company Number: US-Merz Pharmaceuticals GmbH-24-01422

PATIENT
  Sex: Male

DRUGS (2)
  1. XEOMIN [Suspect]
     Active Substance: INCOBOTULINUMTOXINA
     Indication: Neuromuscular blocking therapy
  2. XEOMIN [Suspect]
     Active Substance: INCOBOTULINUMTOXINA
     Indication: Neuromuscular blocking therapy

REACTIONS (2)
  - Small intestinal obstruction [Unknown]
  - Off label use [Unknown]
